FAERS Safety Report 19468846 (Version 5)
Quarter: 2021Q3

REPORT INFORMATION
  Report Type: Spontaneous
  Country: FR (occurrence: FR)
  Receive Date: 20210629
  Receipt Date: 20210806
  Transmission Date: 20211014
  Serious: Yes (Life-Threatening, Hospitalization, Other)
  Sender: FDA-Public Use
  Company Number: FR-ASTRAZENECA-2021A557282

PATIENT
  Age: 951 Month
  Sex: Female
  Weight: 47 kg

DRUGS (1)
  1. LYNPARZA [Suspect]
     Active Substance: OLAPARIB
     Indication: OVARIAN CANCER
     Route: 048
     Dates: start: 202005, end: 202106

REACTIONS (25)
  - Haematocrit decreased [Unknown]
  - Haemoglobin decreased [Unknown]
  - Platelet count decreased [Not Recovered/Not Resolved]
  - Gamma-glutamyltransferase increased [Unknown]
  - Blood alkaline phosphatase increased [Unknown]
  - General physical condition abnormal [Not Recovered/Not Resolved]
  - Eosinophil count increased [Recovered/Resolved]
  - Hyperleukocytosis [Unknown]
  - White blood cell count decreased [Unknown]
  - Aspartate aminotransferase increased [Unknown]
  - Alanine aminotransferase increased [Recovered/Resolved]
  - Pyrexia [Not Recovered/Not Resolved]
  - Neutrophil count increased [Recovered/Resolved]
  - Asthenia [Not Recovered/Not Resolved]
  - C-reactive protein increased [Unknown]
  - Mean cell volume increased [Unknown]
  - Red blood cell count decreased [Unknown]
  - Acute myeloid leukaemia [Not Recovered/Not Resolved]
  - Metamyelocyte percentage [Unknown]
  - Mean cell haemoglobin increased [Recovering/Resolving]
  - Red cell distribution width increased [Unknown]
  - Lymphocyte count increased [Unknown]
  - Blast cells present [Not Recovered/Not Resolved]
  - Monocyte count increased [Unknown]
  - Pancytopenia [Not Recovered/Not Resolved]

NARRATIVE: CASE EVENT DATE: 202106
